FAERS Safety Report 5756192-5 (Version None)
Quarter: 2008Q2

REPORT INFORMATION
  Report Type: 
  Country: None (occurrence: None)
  Receive Date: 20080602
  Receipt Date: 20080527
  Transmission Date: 20081010
  Serious: Yes (Hospitalization, Other)
  Sender: FDA-Public Use
  Company Number: AU-PFIZER INC-2008014374

PATIENT
  Sex: Male
  Weight: 44.5 kg

DRUGS (1)
  1. CHANTIX [Suspect]
     Route: 048

REACTIONS (8)
  - AGITATION [None]
  - ALTERED STATE OF CONSCIOUSNESS [None]
  - COMA [None]
  - CONFUSIONAL STATE [None]
  - CONVULSION [None]
  - EMOTIONAL DISTRESS [None]
  - PAIN [None]
  - PARANOIA [None]
